FAERS Safety Report 8307822-5 (Version None)
Quarter: 2012Q2

REPORT INFORMATION
  Report Type: 
  Country: None (occurrence: None)
  Receive Date: 20120424
  Receipt Date: 20120412
  Transmission Date: 20120825
  Serious: Yes (Other)
  Sender: FDA-Public Use
  Company Number: DE-ACTELION-A-CH2012-63635

PATIENT
  Sex: Male
  Weight: 59 kg

DRUGS (2)
  1. ZAVESCA [Suspect]
     Indication: NIEMANN-PICK DISEASE
     Dosage: 200 MG, TID
     Route: 048
  2. ZAVESCA [Suspect]
     Dosage: 100 MG, OD
     Route: 048
     Dates: start: 20120321

REACTIONS (3)
  - VOMITING [None]
  - JAUNDICE [None]
  - WEIGHT DECREASED [None]
